FAERS Safety Report 20056791 (Version 1)
Quarter: 2021Q4

REPORT INFORMATION
  Report Type: Spontaneous
  Country: ES (occurrence: ES)
  Receive Date: 20211111
  Receipt Date: 20211111
  Transmission Date: 20220303
  Serious: Yes (Other)
  Sender: FDA-Public Use
  Company Number: None

PATIENT
  Age: 67 Year
  Sex: Female

DRUGS (11)
  1. VORICONAZOLE [Suspect]
     Active Substance: VORICONAZOLE
     Indication: Bronchopulmonary aspergillosis allergic
     Dosage: 200 MG
     Route: 048
     Dates: start: 20210714, end: 20210920
  2. LEXXEMA [Concomitant]
     Dosage: 1 TUBE OF 60 G
     Route: 061
  3. MIRABEGRON [Concomitant]
     Active Substance: MIRABEGRON
     Dosage: 50 MG ,30 TABLETS
     Route: 048
     Dates: start: 20191016
  4. ACLIDINIUM BROMIDE [Concomitant]
     Active Substance: ACLIDINIUM BROMIDE
     Dosage: 322 MCG , 1 INHALER OF 60 DOSES
     Route: 055
     Dates: start: 20130219
  5. FLUTICASONE FUROATE\VILANTEROL TRIFENATATE [Concomitant]
     Active Substance: FLUTICASONE FUROATE\VILANTEROL TRIFENATATE
     Dosage: UNIT DOSE :1 DOSAGE FORMS ,184 MCG / 22 MCG  (UNIDODIS) 30 DOSES
     Route: 055
     Dates: start: 20180705
  6. PREDNISONE [Concomitant]
     Active Substance: PREDNISONE
     Dosage: 15 MG , 60 TABLETS
     Route: 048
     Dates: start: 20210906, end: 20210920
  7. ESCITALOPRAM OXALATE [Concomitant]
     Active Substance: ESCITALOPRAM OXALATE
     Dosage: 10 MG ,28 TABLETS
     Route: 048
     Dates: start: 20181204
  8. OMEPRAZOL CINFA [Concomitant]
     Dosage: 40 MG ,28 CAPSULES (PVC-PVDC-ALUMINUM BLISTER)
     Route: 048
     Dates: start: 20141002
  9. COLISTIMETATO DE SODIO [Concomitant]
     Dosage: PULMONARY INHALATION
     Route: 055
  10. MONTELUKAST CINFA [Concomitant]
     Dosage: 10 MG ,28 TABLETS
     Route: 048
     Dates: start: 20120411
  11. BROMAZEPAM NORMON [Concomitant]
     Dosage: 1.5 MG ,30 CAPSULES
     Route: 048
     Dates: start: 20210902

REACTIONS (2)
  - Hypertransaminasaemia [Recovering/Resolving]
  - Photosensitivity reaction [Recovering/Resolving]

NARRATIVE: CASE EVENT DATE: 20210915
